FAERS Safety Report 6847471-9 (Version None)
Quarter: 2010Q3

REPORT INFORMATION
  Report Type: 
  Country: None (occurrence: None)
  Receive Date: 20100716
  Receipt Date: 20100712
  Transmission Date: 20110219
  Serious: Yes (Hospitalization, Other)
  Sender: FDA-Public Use
  Company Number: JP-PFIZER INC-2010074940

PATIENT
  Age: 12 Year
  Sex: Female
  Weight: 59.6 kg

DRUGS (3)
  1. GENOTROPIN [Suspect]
     Indication: TURNER'S SYNDROME
     Dosage: 2 MG, 1X/DAY
     Route: 058
     Dates: start: 20070208, end: 20090206
  2. GENOTROPIN [Suspect]
     Dosage: 4 MG, 1X/DAY
     Route: 058
     Dates: start: 20090207, end: 20100608
  3. GENOTROPIN [Suspect]
     Dosage: 2.4 MG, 1X/DAY
     Route: 058
     Dates: start: 20100609

REACTIONS (1)
  - PANCREATIC NEOPLASM [None]
